FAERS Safety Report 22248076 (Version 1)
Quarter: 2023Q2

REPORT INFORMATION
  Report Type: Spontaneous
  Country: DE (occurrence: DE)
  Receive Date: 20230425
  Receipt Date: 20230425
  Transmission Date: 20230721
  Serious: No
  Sender: FDA-Public Use
  Company Number: DE-ALKEM LABORATORIES LIMITED-DE-ALKEM-2023-00953

PATIENT
  Age: 74 Year
  Sex: Female

DRUGS (1)
  1. LACOSAMIDE [Suspect]
     Active Substance: LACOSAMIDE
     Indication: Product used for unknown indication
     Dosage: 200 MILLIGRAM, EVERY 1 DAY (FILM-COATED TABLET)
     Route: 065
     Dates: start: 20221101

REACTIONS (2)
  - Visual impairment [Unknown]
  - Pruritus [Unknown]

NARRATIVE: CASE EVENT DATE: 20221114
